FAERS Safety Report 12136506 (Version 1)
Quarter: 2016Q1

REPORT INFORMATION
  Report Type: Spontaneous
  Country: US (occurrence: None)
  Receive Date: 20160301
  Receipt Date: 20160301
  Transmission Date: 20160526
  Serious: Yes (Other)
  Sender: FDA-Public Use
  Company Number: None

PATIENT
  Age: 7 Year
  Sex: Female
  Weight: 40.37 kg

DRUGS (4)
  1. ADDERALL XR [Concomitant]
     Active Substance: AMPHETAMINE ASPARTATE\AMPHETAMINE SULFATE\DEXTROAMPHETAMINE SACCHARATE\DEXTROAMPHETAMINE SULFATE
  2. ARIPIPRAZOLE. [Suspect]
     Active Substance: ARIPIPRAZOLE
     Indication: BIPOLAR I DISORDER
     Dosage: 1 TAB TWICE DAILY TAKEN BY MOUTH
     Dates: start: 20160224, end: 20160229
  3. ADDERALL [Concomitant]
     Active Substance: AMPHETAMINE ASPARTATE\AMPHETAMINE SULFATE\DEXTROAMPHETAMINE SACCHARATE\DEXTROAMPHETAMINE SULFATE
  4. GENERIC ABIIFY [Concomitant]

REACTIONS (9)
  - Product substitution issue [None]
  - Drug ineffective [None]
  - Impulsive behaviour [None]
  - Pruritus [None]
  - Restlessness [None]
  - Screaming [None]
  - Feeling abnormal [None]
  - Insomnia [None]
  - Skin haemorrhage [None]

NARRATIVE: CASE EVENT DATE: 20160224
